FAERS Safety Report 5363513-4 (Version None)
Quarter: 2007Q2

REPORT INFORMATION
  Report Type: 
  Country: None (occurrence: None)
  Receive Date: 20070618
  Receipt Date: 20070604
  Transmission Date: 20071010
  Serious: Yes (Life-Threatening, Hospitalization)
  Sender: FDA-Public Use
  Company Number: 02100-JPN-07-0237

PATIENT
  Age: 74 Year
  Sex: Male

DRUGS (8)
  1. CILOSTAZOL [Suspect]
     Indication: CAROTID ARTERY STENOSIS
     Dosage: 200 MG, ORAL
     Route: 048
     Dates: start: 20060529, end: 20070501
  2. IOPAMIDOL [Suspect]
     Indication: ANGIOGRAM
     Dosage: 100 ML, IV DRIP
     Route: 041
     Dates: start: 20070429, end: 20070429
  3. GLYCERRHIZA POWDER COMBINED DRUG [Concomitant]
  4. ETIZOLAM [Concomitant]
  5. TOCOPHEROL CONCENTRATE CAP [Concomitant]
  6. FAMOTIDINE [Concomitant]
  7. ALLOPURINOL [Concomitant]
  8. ASPIRIN [Concomitant]

REACTIONS (4)
  - LOSS OF CONSCIOUSNESS [None]
  - TACHYCARDIA PAROXYSMAL [None]
  - VENTRICULAR EXTRASYSTOLES [None]
  - VENTRICULAR TACHYCARDIA [None]
